FAERS Safety Report 21535566 (Version 2)
Quarter: 2022Q4

REPORT INFORMATION
  Report Type: Spontaneous
  Country: CA (occurrence: CA)
  Receive Date: 20221101
  Receipt Date: 20221109
  Transmission Date: 20230112
  Serious: Yes (Other)
  Sender: FDA-Public Use
  Company Number: CA-AMERICAN REGENT INC-2022003124

PATIENT

DRUGS (1)
  1. VENOFER [Suspect]
     Active Substance: IRON SUCROSE
     Indication: Product used for unknown indication
     Dosage: 300 MILLIGRAM/250 ML NORMAL SALINE
     Route: 042
     Dates: start: 20221024, end: 20221024

REACTIONS (7)
  - Burning sensation [Unknown]
  - Joint stiffness [Unknown]
  - Urticaria [Recovered/Resolved]
  - Pruritus [Unknown]
  - Arthralgia [Unknown]
  - Hypotension [Recovered/Resolved]
  - Product quality issue [Unknown]

NARRATIVE: CASE EVENT DATE: 20221024
